FAERS Safety Report 16362413 (Version 16)
Quarter: 2020Q3

REPORT INFORMATION
  Report Type: Spontaneous
  Country: US (occurrence: US)
  Receive Date: 20190528
  Receipt Date: 20200827
  Transmission Date: 20201102
  Serious: Yes (Other)
  Sender: FDA-Public Use
  Company Number: US-PFIZER INC-2019225183

PATIENT
  Age: 24 Year
  Sex: Female
  Weight: 72 kg

DRUGS (39)
  1. NEURONTIN [Concomitant]
     Active Substance: GABAPENTIN
     Dosage: UNK
  2. TYLENOL [Concomitant]
     Active Substance: ACETAMINOPHEN
     Dosage: 325 MG, AS NEEDED (2 TABLETS EVERY 8 HOURS)
     Route: 048
  3. PROPRANOLOL HCL [Concomitant]
     Active Substance: PROPRANOLOL HYDROCHLORIDE
     Dosage: 10 MG, 2X/DAY (AS NEEDED)
  4. MOMETASONE [Concomitant]
     Active Substance: MOMETASONE
     Dosage: UNK, 2X/DAY (2 PUFF)
     Route: 045
  5. BUSPIRONE HCL [Concomitant]
     Active Substance: BUSPIRONE HYDROCHLORIDE
     Dosage: 15 MG, AS NEEDED (3 TIMES)
  6. FLUOXETINE [Concomitant]
     Active Substance: FLUOXETINE HYDROCHLORIDE
     Dosage: 40 MG, DAILY
     Route: 048
  7. IPRATROPIUM [Concomitant]
     Active Substance: IPRATROPIUM
     Dosage: 0.5 MG, 2X/DAY
  8. ACETAMINOPHEN. [Concomitant]
     Active Substance: ACETAMINOPHEN
     Dosage: 650 MG, AS NEEDED
  9. DONEPEZIL. [Concomitant]
     Active Substance: DONEPEZIL
     Dosage: 10 MG, NIGHTLY
     Route: 048
  10. KLONOPIN [Concomitant]
     Active Substance: CLONAZEPAM
     Indication: PSYCHOTIC DISORDER
     Dosage: 1 MG, 3X/DAY (EVERY 8 HOURS)
     Route: 048
  11. MECLIZINE [Concomitant]
     Active Substance: MECLIZINE HYDROCHLORIDE
     Dosage: 122.5 MG, 3X/DAY
     Route: 048
  12. LEXAPRO [Concomitant]
     Active Substance: ESCITALOPRAM OXALATE
     Dosage: 20 MG, DAILY
  13. ENOXAPARIN [Concomitant]
     Active Substance: ENOXAPARIN
     Dosage: 40 MG, 1X/DAY
     Route: 058
  14. GUAIFENESIN AND DEXTROMETHORPHAN [Concomitant]
     Active Substance: DEXTROMETHORPHAN\GUAIFENESIN
     Dosage: 5 MG, EVERY 4 HRS (PRN)
     Route: 048
  15. ALBUTEROL. [Concomitant]
     Active Substance: ALBUTEROL
     Dosage: 5 MG, EVERY 4 HRS (PRN)
  16. ATROVENT [Concomitant]
     Active Substance: IPRATROPIUM BROMIDE
     Dosage: UNK
  17. MECLIZINE [Concomitant]
     Active Substance: MECLIZINE HYDROCHLORIDE
     Indication: DIZZINESS
     Dosage: 12.5 MG, 3X/DAY (EVERY 8 HOURS)
     Route: 048
  18. SEROQUEL [Concomitant]
     Active Substance: QUETIAPINE FUMARATE
     Indication: PSYCHOTIC DISORDER
     Dosage: 50 MG, DAILY (EVERY NIGHT AT BED TIME)
     Route: 048
  19. TOPIRAMATE. [Concomitant]
     Active Substance: TOPIRAMATE
     Indication: AFFECTIVE DISORDER
     Dosage: 200 MG, 2X/DAY (EVERY 12 HOURS)
     Route: 048
  20. TRINTELLIX [Concomitant]
     Active Substance: VORTIOXETINE HYDROBROMIDE
     Indication: PSYCHOTIC DISORDER
     Dosage: 20 MG, DAILY
     Route: 048
  21. TRAMADOL. [Concomitant]
     Active Substance: TRAMADOL
     Indication: PAIN
     Dosage: 50 MG, DAILY
     Route: 048
  22. DICLOFENAC [Concomitant]
     Active Substance: DICLOFENAC
     Indication: PAIN
     Dosage: 100 G, AS NEEDED (3 TIMES DAILY)
     Route: 061
  23. BACLOFEN. [Concomitant]
     Active Substance: BACLOFEN
     Indication: MUSCLE RELAXANT THERAPY
     Dosage: 10 MG, 3X/DAY (EVERY 8 HOURS)
     Route: 048
  24. KLONOPIN [Concomitant]
     Active Substance: CLONAZEPAM
     Dosage: 0.5 MG, 2X/DAY
     Route: 048
  25. TEMAZEPAM. [Concomitant]
     Active Substance: TEMAZEPAM
     Dosage: 30 MG, AS NEEDED (NIGHTLY)
     Route: 048
  26. TOPIRAMATE. [Concomitant]
     Active Substance: TOPIRAMATE
     Dosage: 100 MG, 2X/DAY
     Route: 048
  27. CLONAZEPAM. [Concomitant]
     Active Substance: CLONAZEPAM
     Dosage: 0.5 MG, 3X/DAY (AS NEEDED)
  28. CALCIUM CARBONATE. [Concomitant]
     Active Substance: CALCIUM CARBONATE
     Dosage: 500 MG, DAILY
     Route: 048
  29. MACROBID [Concomitant]
     Active Substance: NITROFURANTOIN\NITROFURANTOIN MONOHYDRATE
     Dosage: 100 MG, Q12H
     Route: 048
  30. KEPPRA [Concomitant]
     Active Substance: LEVETIRACETAM
     Dosage: 250 MG, 2X/DAY
     Route: 048
  31. PANTOPRAZOLE [Concomitant]
     Active Substance: PANTOPRAZOLE
     Dosage: 40 MG, DAILY
     Route: 048
  32. GABAPENTIN. [Concomitant]
     Active Substance: GABAPENTIN
     Indication: NEUROPATHY PERIPHERAL
     Dosage: 800 MG, 4X/DAY (AFTER MEALS AND AT BEDTIME)
     Route: 048
  33. VITAMIN D [Concomitant]
     Active Substance: VITAMIN D NOS
     Dosage: 1000 IU, DAILY
     Route: 048
  34. ROZEREM [Concomitant]
     Active Substance: RAMELTEON
     Indication: SLEEP DISORDER
     Dosage: 8 MG, 1X/DAY (AT NIGHT)
  35. DILANTIN [Suspect]
     Active Substance: PHENYTOIN
     Dosage: 100 MG, 3X/DAY
  36. QUETIAPINE. [Concomitant]
     Active Substance: QUETIAPINE
     Indication: AFFECTIVE DISORDER
     Dosage: 300 MG, 2X/DAY
     Route: 048
  37. QUETIAPINE. [Concomitant]
     Active Substance: QUETIAPINE
     Dosage: 50 MG, NIGHTLY
     Route: 048
  38. CAPSAICIN. [Concomitant]
     Active Substance: CAPSAICIN
     Dosage: UNK, 2X/DAY
     Route: 061
  39. NICOTINE. [Concomitant]
     Active Substance: NICOTINE
     Dosage: UNK UNK, DAILY (1 PATCH)
     Route: 062

REACTIONS (19)
  - Cerebellar atrophy [Unknown]
  - Major depression [Recovering/Resolving]
  - Cerebral disorder [Unknown]
  - Memory impairment [Unknown]
  - Spinal compression fracture [Unknown]
  - Lumbar radiculopathy [Unknown]
  - Anaphylactic reaction [Unknown]
  - Fall [Unknown]
  - Intervertebral disc degeneration [Unknown]
  - Gait disturbance [Unknown]
  - Ataxia [Not Recovered/Not Resolved]
  - Suicide attempt [Unknown]
  - Tremor [Unknown]
  - Spinal osteoarthritis [Unknown]
  - Spinocerebellar disorder [Unknown]
  - Bipolar disorder [Unknown]
  - Dysgraphia [Unknown]
  - Intervertebral disc protrusion [Unknown]
  - Borderline personality disorder [Unknown]

NARRATIVE: CASE EVENT DATE: 19930324
